FAERS Safety Report 5678120-3 (Version None)
Quarter: 2008Q1

REPORT INFORMATION
  Report Type: 
  Country: None (occurrence: None)
  Receive Date: 20080324
  Receipt Date: 20080324
  Transmission Date: 20080703
  Serious: Yes (Other)
  Sender: FDA-Public Use
  Company Number: None

PATIENT
  Age: 4 Year
  Sex: Female
  Weight: 17.2367 kg

DRUGS (1)
  1. PROAIR HFA [Suspect]
     Indication: BRONCHIAL HYPERREACTIVITY
     Dosage: 2 PUFF AS NEEDED INHAL
     Route: 055
     Dates: start: 20060101, end: 20080320

REACTIONS (1)
  - OBSTRUCTIVE AIRWAYS DISORDER [None]
